FAERS Safety Report 17279705 (Version 1)
Quarter: 2020Q1

REPORT INFORMATION
  Report Type: Spontaneous
  Country: FR (occurrence: FR)
  Receive Date: 20200116
  Receipt Date: 20200116
  Transmission Date: 20200409
  Serious: Yes (Hospitalization)
  Sender: FDA-Public Use
  Company Number: FR-MYLANLABS-2020M1003816

PATIENT
  Age: 71 Year
  Sex: Male
  Weight: 80 kg

DRUGS (3)
  1. LANSOPRAZOLE MYLAN 15 MG, G?LULE GASTRO-R?SISTANTE [Suspect]
     Active Substance: LANSOPRAZOLE
     Indication: PROPHYLAXIS AGAINST GASTROINTESTINAL ULCER
     Dosage: 15 MILLIGRAM, QD
     Route: 048
     Dates: start: 201906
  2. LIPTRUZET [Suspect]
     Active Substance: ATORVASTATIN CALCIUM\EZETIMIBE
     Indication: DYSLIPIDAEMIA
     Dosage: 10 MILLIGRAM, QD
     Route: 048
     Dates: start: 20190813, end: 20190913
  3. TAHOR [Suspect]
     Active Substance: ATORVASTATIN CALCIUM
     Indication: DYSLIPIDAEMIA
     Dosage: 40 MILLIGRAM, QD
     Route: 048
     Dates: start: 20190616, end: 20190813

REACTIONS (2)
  - Rhabdomyolysis [Not Recovered/Not Resolved]
  - Transaminases increased [Not Recovered/Not Resolved]

NARRATIVE: CASE EVENT DATE: 20190912
